FAERS Safety Report 24544807 (Version 1)
Quarter: 2024Q4

REPORT INFORMATION
  Report Type: Spontaneous
  Country: US (occurrence: US)
  Receive Date: 20241024
  Receipt Date: 20241024
  Transmission Date: 20250114
  Serious: No
  Sender: BAYER HEALTHCARE PHARMACEUTICALS INC.
  Company Number: US-BAYER-2024A150974

PATIENT
  Sex: Female

DRUGS (1)
  1. MIRENA [Suspect]
     Active Substance: LEVONORGESTREL
     Dosage: 20?G/DAY
     Route: 015
     Dates: start: 20240718

REACTIONS (3)
  - Hypomenorrhoea [Unknown]
  - Menstruation delayed [Unknown]
  - Heavy menstrual bleeding [None]

NARRATIVE: CASE EVENT DATE: 20240101
